FAERS Safety Report 4832316-9 (Version None)
Quarter: 2005Q4

REPORT INFORMATION
  Report Type: 
  Country: None (occurrence: None)
  Receive Date: 20051116
  Receipt Date: 20051116
  Transmission Date: 20060501
  Serious: No
  Sender: FDA-Public Use
  Company Number: None

PATIENT
  Age: 23 Year
  Sex: Female
  Weight: 63.5036 kg

DRUGS (1)
  1. FACTIVE [Suspect]
     Indication: PHARYNGITIS STREPTOCOCCAL
     Dosage: 320 MG DAILY 5 DAYS
     Dates: start: 20051027, end: 20051101

REACTIONS (2)
  - RASH GENERALISED [None]
  - RASH PRURITIC [None]
